FAERS Safety Report 11139684 (Version 1)
Quarter: 2015Q2

REPORT INFORMATION
  Report Type: Spontaneous
  Country: US (occurrence: US)
  Receive Date: 20150527
  Receipt Date: 20150527
  Transmission Date: 20150821
  Serious: No
  Sender: FDA-Public Use
  Company Number: US-MALLINCKRODT-QSC-2014-0817

PATIENT
  Age: 43 Year
  Sex: Female

DRUGS (5)
  1. H.P. ACTHAR [Suspect]
     Active Substance: CORTICOTROPIN
     Indication: MULTIPLE SCLEROSIS RELAPSE
     Dosage: 80 UNITS, QD
     Route: 058
     Dates: start: 20141014, end: 20141018
  2. LUNESTA [Concomitant]
     Active Substance: ESZOPICLONE
     Dosage: UNK
  3. BACLOFEN. [Concomitant]
     Active Substance: BACLOFEN
     Dosage: UNK
  4. LEVOTHYROXINE [Concomitant]
     Active Substance: LEVOTHYROXINE
     Dosage: UNK
  5. EXTRA STRENGTH TYLENOL BACK PAIN [Concomitant]
     Dosage: UNK

REACTIONS (7)
  - Dyspnoea [Recovered/Resolved]
  - Dysuria [Recovered/Resolved]
  - Tenderness [Recovering/Resolving]
  - Blood potassium decreased [Unknown]
  - Weight increased [Recovering/Resolving]
  - Dry eye [Unknown]
  - Insomnia [Unknown]

NARRATIVE: CASE EVENT DATE: 20141017
